FAERS Safety Report 21963984 (Version 2)
Quarter: 2023Q1

REPORT INFORMATION
  Report Type: Spontaneous
  Country: US (occurrence: US)
  Receive Date: 20230207
  Receipt Date: 20230321
  Transmission Date: 20230418
  Serious: No
  Sender: FDA-Public Use
  Company Number: US-BAYER-2023P008141

PATIENT
  Age: 25 Year
  Sex: Female

DRUGS (2)
  1. KYLEENA [Suspect]
     Active Substance: LEVONORGESTREL
     Indication: Intrauterine contraception
     Dosage: 17.5?G/DAY
     Route: 015
     Dates: start: 202106
  2. KYLEENA [Suspect]
     Active Substance: LEVONORGESTREL
     Indication: Rheumatoid arthritis

REACTIONS (4)
  - Conjunctivitis [None]
  - Mental status changes [None]
  - General physical health deterioration [None]
  - Rash [None]
